FAERS Safety Report 6507027-4 (Version None)
Quarter: 2009Q4

REPORT INFORMATION
  Report Type: 
  Country: None (occurrence: None)
  Receive Date: 20091221
  Receipt Date: 20091207
  Transmission Date: 20100525
  Serious: Yes (Hospitalization, Other)
  Sender: FDA-Public Use
  Company Number: US-SANOFI-AVENTIS-2009SA008229

PATIENT
  Age: 79 Year
  Sex: Male

DRUGS (13)
  1. PLAVIX [Suspect]
     Route: 048
     Dates: start: 20090617, end: 20091101
  2. PLAVIX [Suspect]
     Route: 048
     Dates: start: 20091105
  3. PEPCID [Concomitant]
  4. MAALOX [Concomitant]
  5. ATACAND [Concomitant]
  6. METOPROLOL TARTRATE [Concomitant]
  7. IRON [Concomitant]
  8. VITAMIN D [Concomitant]
  9. VITAMIN A [Concomitant]
  10. HYTRIN [Concomitant]
  11. MULTI-VITAMINS [Concomitant]
  12. ASPIRIN [Concomitant]
  13. ASPIRIN [Concomitant]

REACTIONS (6)
  - ANAEMIA [None]
  - ARTHRALGIA [None]
  - BACK PAIN [None]
  - GASTRITIS [None]
  - POST PROCEDURAL HAEMORRHAGE [None]
  - URINARY RETENTION [None]
